FAERS Safety Report 5322059-X (Version None)
Quarter: 2007Q2

REPORT INFORMATION
  Report Type: 
  Country: None (occurrence: None)
  Receive Date: 20070511
  Receipt Date: 20070501
  Transmission Date: 20071010
  Serious: Yes (Death, Hospitalization)
  Sender: FDA-Public Use
  Company Number: US-JNJFOC-20060902467

PATIENT
  Age: 56 Year
  Sex: Female

DRUGS (1)
  1. ASPIRIN [Suspect]
     Indication: SUICIDE ATTEMPT

REACTIONS (3)
  - ABDOMINAL PAIN [None]
  - COMPLETED SUICIDE [None]
  - INTENTIONAL OVERDOSE [None]
